FAERS Safety Report 5885440 (Version 2)
Quarter: 2014Q3

REPORT INFORMATION
  Report Type: Spontaneous
  Country: US (occurrence: US)
  Receive Date: 20050926
  Receipt Date: 20140812
  Transmission Date: 20150326
  Serious: No
  Sender: FDA-Public Use
  Company Number: US-BRISTOL-MYERS SQUIBB COMPANY-13104187

PATIENT
  Age: 38 Year
  Sex: Female

DRUGS (6)
  1. GLIPIZIDE. [Concomitant]
     Active Substance: GLIPIZIDE
  2. LOPID [Concomitant]
     Active Substance: GEMFIBROZIL
  3. NORVIR [Concomitant]
     Active Substance: RITONAVIR
  4. VIDEX [Concomitant]
     Active Substance: DIDANOSINE
  5. VIREAD [Concomitant]
     Active Substance: TENOFOVIR DISOPROXIL FUMARATE
  6. REYATAZ [Suspect]
     Active Substance: ATAZANAVIR SULFATE
     Indication: HIV TEST POSITIVE
     Dosage: 1DF:300  UNIT NOS

REACTIONS (1)
  - Nephrolithiasis [Unknown]
